FAERS Safety Report 20415577 (Version 3)
Quarter: 2022Q1

REPORT INFORMATION
  Report Type: Spontaneous
  Country: TR (occurrence: TR)
  Receive Date: 20220202
  Receipt Date: 20220307
  Transmission Date: 20220423
  Serious: Yes (Other)
  Sender: FDA-Public Use
  Company Number: TR-NOVARTISPH-NVSC2022TR021016

PATIENT
  Age: 48 Year
  Sex: Male

DRUGS (2)
  1. TAFINLAR [Suspect]
     Active Substance: DABRAFENIB MESYLATE
     Indication: Brain neoplasm
     Dosage: 75 MG (USING ONE MEKINIST AND TWO TAFINLAR IN  MORNINGS AND TWO TAFINLAR IN EVENINGS)
     Route: 065
     Dates: start: 202104
  2. MEKINIST [Suspect]
     Active Substance: TRAMETINIB DIMETHYL SULFOXIDE
     Indication: Brain neoplasm
     Dosage: 2 MG (USING ONE MEKINIST AND TWO TAFINLAR IN  MORNINGS AND TWO TAFINLAR IN EVENINGS)
     Route: 065
     Dates: start: 202104

REACTIONS (9)
  - Neoplasm recurrence [Unknown]
  - Central nervous system lesion [Unknown]
  - Pyrexia [Not Recovered/Not Resolved]
  - Chills [Unknown]
  - Headache [Unknown]
  - Fatigue [Unknown]
  - Decreased appetite [Unknown]
  - Speech disorder [Unknown]
  - Product use in unapproved indication [Unknown]
